FAERS Safety Report 13878717 (Version 1)
Quarter: 2017Q3

REPORT INFORMATION
  Report Type: Spontaneous
  Country: CA (occurrence: CA)
  Receive Date: 20170817
  Receipt Date: 20170817
  Transmission Date: 20171127
  Serious: Yes (Disabling)
  Sender: FDA-Public Use
  Company Number: CA-TEVA-796245ACC

PATIENT
  Age: 26 Year
  Sex: Female
  Weight: 65.38 kg

DRUGS (2)
  1. DOXYCYCLINE. [Suspect]
     Active Substance: DOXYCYCLINE
     Indication: CHLAMYDIAL INFECTION
     Dosage: 200 MILLIGRAM DAILY;
     Route: 048
  2. YAZ [Concomitant]
     Active Substance: DROSPIRENONE\ETHINYL ESTRADIOL

REACTIONS (4)
  - Social problem [Recovering/Resolving]
  - Depressed mood [Recovering/Resolving]
  - Depressive symptom [Recovering/Resolving]
  - Crying [Recovering/Resolving]
